FAERS Safety Report 10244594 (Version 2)
Quarter: 2014Q2

REPORT INFORMATION
  Report Type: Spontaneous
  Country: CA (occurrence: CA)
  Receive Date: 20140618
  Receipt Date: 20140626
  Transmission Date: 20141212
  Serious: Yes (Death)
  Sender: FDA-Public Use
  Company Number: CA-GLAXOSMITHKLINE-A1077250A

PATIENT
  Age: 62 Year
  Sex: Male

DRUGS (1)
  1. TAFINLAR [Suspect]
     Indication: METASTATIC MALIGNANT MELANOMA
     Dosage: 300MG PER DAY
     Route: 065
     Dates: start: 20140205, end: 20140612

REACTIONS (1)
  - Metastatic malignant melanoma [Fatal]
